FAERS Safety Report 6991922-6 (Version None)
Quarter: 2010Q3

REPORT INFORMATION
  Report Type: 
  Country: None (occurrence: None)
  Receive Date: 20100917
  Receipt Date: 20100906
  Transmission Date: 20110219
  Serious: Yes (Hospitalization, Other)
  Sender: FDA-Public Use
  Company Number: PHHY2010FR60652

PATIENT
  Age: 61 Year
  Sex: Female

DRUGS (5)
  1. COMTAN [Suspect]
     Indication: PARKINSON'S DISEASE
     Dosage: 1200 MG, QD
     Dates: start: 20100101
  2. MODOPAR [Suspect]
     Indication: PARKINSON'S DISEASE
     Dosage: 2000 MG, QD
     Dates: start: 20000101
  3. PRAMIPEXOLE DIHYDROCHLORIDE [Suspect]
     Indication: PARKINSON'S DISEASE
     Dosage: 3.5 MG, QD
     Dates: start: 20090101
  4. AZILECT [Suspect]
     Indication: PARKINSON'S DISEASE
     Dosage: 1 MG PER OS AT 1 TABLET DAILY
     Dates: start: 20090101
  5. ESCITALOPRAM [Suspect]
     Indication: DEPRESSIVE SYMPTOM
     Dosage: ONCE PER DAY
     Dates: start: 20100501

REACTIONS (4)
  - COMPULSIONS [None]
  - DEPRESSION [None]
  - OBSESSIVE THOUGHTS [None]
  - OBSESSIVE-COMPULSIVE DISORDER [None]
